FAERS Safety Report 9125486 (Version 2)
Quarter: 2013Q2

REPORT INFORMATION
  Report Type: Spontaneous
  Country: US (occurrence: US)
  Receive Date: 20130117
  Receipt Date: 20130423
  Transmission Date: 20140414
  Serious: No
  Sender: FDA-Public Use
  Company Number: US-BRISTOL-MYERS SQUIBB COMPANY-17205071

PATIENT
  Age: 71 Year
  Sex: Female

DRUGS (5)
  1. YERVOY [Suspect]
     Indication: MALIGNANT MELANOMA
     Dosage: NO OF DOSE:3
     Route: 042
  2. DIPHENHYDRAMINE HCL [Suspect]
     Indication: PRURITUS
  3. PREMARIN [Concomitant]
  4. PROVERA [Concomitant]
  5. MAXIDEX [Concomitant]

REACTIONS (5)
  - Pruritus [Unknown]
  - Blood pressure increased [Unknown]
  - Feeling abnormal [Unknown]
  - Autoimmune thyroiditis [Unknown]
  - Hypophysitis [Unknown]
